FAERS Safety Report 9844808 (Version 1)
Quarter: 2014Q1

REPORT INFORMATION
  Report Type: Spontaneous
  Country: US (occurrence: None)
  Receive Date: 20140122
  Receipt Date: 20140122
  Transmission Date: 20141002
  Serious: Yes (Death)
  Sender: FDA-Public Use
  Company Number: B0960437A

PATIENT
  Age: 47 Year
  Sex: Female

DRUGS (9)
  1. BUPROPION HCL [Suspect]
     Route: 048
  2. METHAMPHETAMINE HYDROCHLORIDE [Suspect]
     Route: 048
  3. HYDROCODONE + ACETAMINOPHEN [Suspect]
     Route: 048
  4. ALPRAZOLAM [Suspect]
     Route: 048
  5. CITALOPRAM [Suspect]
     Route: 048
  6. VENLAFAXINE HCL [Suspect]
     Dosage: PO.
  7. CARBAMAZEPINE [Suspect]
     Route: 048
  8. DOXYLAMINE [Suspect]
     Dosage: PO.
  9. TRAMADOL [Suspect]
     Route: 048

REACTIONS (1)
  - Exposure via ingestion [None]
